FAERS Safety Report 16085447 (Version 1)
Quarter: 2019Q1

REPORT INFORMATION
  Report Type: Spontaneous
  Country: US (occurrence: US)
  Receive Date: 20190318
  Receipt Date: 20190318
  Transmission Date: 20190418
  Serious: No
  Sender: FDA-Public Use
  Company Number: US-AMNEAL PHARMACEUTICALS-2019AMN00087

PATIENT

DRUGS (3)
  1. LISINOPRIL / HYDROCHOROTHIAZIDE [Concomitant]
     Indication: BLOOD PRESSURE MANAGEMENT
     Dosage: 20-12.5 MG, QD
     Dates: start: 2014
  2. OSELTAMIVIR PHOSPHATE. [Suspect]
     Active Substance: OSELTAMIVIR PHOSPHATE
     Indication: INFLUENZA
     Dosage: 2X/DAY, PATIENT TOOK TOTAL 3 DOSES.
     Route: 065
     Dates: start: 20190114, end: 20190115
  3. CLARITIN [Concomitant]
     Active Substance: LORATADINE
     Indication: HYPERSENSITIVITY
     Dosage: 10 MG, 1X/DAY, TAKING THIS FOR MANY YEARS

REACTIONS (5)
  - Swelling of eyelid [Not Recovered/Not Resolved]
  - Nightmare [Not Recovered/Not Resolved]
  - Emotional distress [Not Recovered/Not Resolved]
  - Dry skin [Not Recovered/Not Resolved]
  - Swelling face [Not Recovered/Not Resolved]

NARRATIVE: CASE EVENT DATE: 20190115
